FAERS Safety Report 6982260-6 (Version None)
Quarter: 2010Q3

REPORT INFORMATION
  Report Type: 
  Country: None (occurrence: None)
  Receive Date: 20100909
  Receipt Date: 20100825
  Transmission Date: 20110219
  Serious: Yes (Other)
  Sender: FDA-Public Use
  Company Number: AUR-APL-2010-02168

PATIENT
  Sex: Female

DRUGS (3)
  1. METFORMIN HCL [Suspect]
  2. GLIPIZIDE [Suspect]
  3. JANUVIA [Suspect]

REACTIONS (1)
  - BLOOD GLUCOSE INCREASED [None]
